FAERS Safety Report 9995272 (Version 1)
Quarter: 2014Q1

REPORT INFORMATION
  Report Type: Spontaneous
  Country: US (occurrence: None)
  Receive Date: 20140214
  Receipt Date: 20140214
  Transmission Date: 20141002
  Serious: Yes (Other)
  Sender: FDA-Public Use
  Company Number: US-013773

PATIENT
  Age: 66 Year
  Sex: Female

DRUGS (1)
  1. PREPOPIK [Suspect]
     Indication: BOWEL PREPARATION
     Route: 048
     Dates: start: 201311, end: 201311

REACTIONS (1)
  - Drug ineffective [None]
